FAERS Safety Report 18161200 (Version 1)
Quarter: 2020Q3

REPORT INFORMATION
  Report Type: Spontaneous
  Country: GB (occurrence: GB)
  Receive Date: 20200818
  Receipt Date: 20200818
  Transmission Date: 20201103
  Serious: Yes (Disabling)
  Sender: FDA-Public Use
  Company Number: GB-TEVA-2020-GB-1814372

PATIENT
  Age: 72 Year
  Sex: Female
  Weight: 50 kg

DRUGS (7)
  1. LANSOPRAZOLE. [Suspect]
     Active Substance: LANSOPRAZOLE
     Indication: DYSPEPSIA
     Dosage: 30 MG
     Route: 048
     Dates: start: 20200711, end: 20200711
  2. TIMOLOL. [Concomitant]
     Active Substance: TIMOLOL
  3. DORZOLAMIDE [Concomitant]
     Active Substance: DORZOLAMIDE
  4. PILOCARPINE HYDROCHLORIDE. [Concomitant]
     Active Substance: PILOCARPINE HYDROCHLORIDE
  5. LEVOTHYROXINE SODIUM. [Concomitant]
     Active Substance: LEVOTHYROXINE SODIUM
  6. TRAVOPROST. [Concomitant]
     Active Substance: TRAVOPROST
  7. BRIMONIDINE [Concomitant]
     Active Substance: BRIMONIDINE TARTRATE

REACTIONS (8)
  - Feeling cold [Recovered/Resolved]
  - Abdominal pain upper [Recovered/Resolved]
  - Vomiting [Recovered/Resolved]
  - Hyperhidrosis [Recovered/Resolved]
  - Diarrhoea [Recovered/Resolved]
  - Dizziness [Recovered/Resolved]
  - Presyncope [Recovered/Resolved]
  - Feeling hot [Unknown]

NARRATIVE: CASE EVENT DATE: 20200711
